FAERS Safety Report 5965730-9 (Version None)
Quarter: 2008Q4

REPORT INFORMATION
  Report Type: 
  Country: None (occurrence: None)
  Receive Date: 20081125
  Receipt Date: 20081124
  Transmission Date: 20090506
  Serious: Yes (Other)
  Sender: FDA-Public Use
  Company Number: A0758174A

PATIENT
  Sex: Female

DRUGS (3)
  1. LAMICTAL [Suspect]
     Route: 048
  2. TOPAMAX [Suspect]
  3. UNKNOWN [Concomitant]

REACTIONS (2)
  - CONVULSION [None]
  - HORMONE LEVEL ABNORMAL [None]
